FAERS Safety Report 9186005 (Version 1)
Quarter: 2013Q1

REPORT INFORMATION
  Report Type: Spontaneous
  Country: RO (occurrence: RO)
  Receive Date: 20130325
  Receipt Date: 20130325
  Transmission Date: 20140127
  Serious: Yes (Hospitalization)
  Sender: FDA-Public Use
  Company Number: RO-TEVA-393044ISR

PATIENT
  Age: 32 Year
  Sex: Female
  Weight: 125 kg

DRUGS (9)
  1. AMLODIPINE [Suspect]
     Indication: PRE-ECLAMPSIA
     Dosage: 10 MILLIGRAM DAILY; 10 MG IN A UNIQUE DOSE
  2. ALPHA-METHYLDOPA [Suspect]
     Indication: PRE-ECLAMPSIA
     Dosage: 2250 MILLIGRAM DAILY; 750 MG YTHREE TIMES A DAY
  3. B6 [Concomitant]
  4. B12 [Concomitant]
  5. ENOXAPARIN [Concomitant]
     Dosage: 1.2 MILLIGRAM DAILY;
  6. FOLIC ACID [Concomitant]
     Dosage: 5 MILLIGRAM DAILY;
  7. BUPIVACAINE [Concomitant]
     Dosage: 0.5% 3ML
     Route: 039
  8. METOCLOPRAMIDE [Concomitant]
  9. CLONIDINE [Concomitant]

REACTIONS (4)
  - Hypertension [Not Recovered/Not Resolved]
  - Live birth [Unknown]
  - Foetal growth restriction [None]
  - Caesarean section [None]
